FAERS Safety Report 18526863 (Version 1)
Quarter: 2020Q4

REPORT INFORMATION
  Report Type: Spontaneous
  Country: JP (occurrence: JP)
  Receive Date: 20201120
  Receipt Date: 20201120
  Transmission Date: 20210114
  Serious: Yes (Other)
  Sender: FDA-Public Use
  Company Number: JP-ROCHE-2717316

PATIENT

DRUGS (2)
  1. BAKTAR [Concomitant]
     Active Substance: SULFAMETHOXAZOLE\TRIMETHOPRIM
     Dosage: DOSAGE IS UNCERTAIN.
     Route: 065
  2. ACTEMRA [Suspect]
     Active Substance: TOCILIZUMAB
     Indication: SERONEGATIVE ARTHRITIS
     Dosage: DOSAGE IS UNCERTAIN.
     Route: 058

REACTIONS (3)
  - Intentional product use issue [Unknown]
  - Off label use [Unknown]
  - Dermatitis exfoliative generalised [Unknown]
